FAERS Safety Report 19905838 (Version 2)
Quarter: 2021Q4

REPORT INFORMATION
  Report Type: Spontaneous
  Country: JP (occurrence: JP)
  Receive Date: 20211001
  Receipt Date: 20211028
  Transmission Date: 20220303
  Serious: Yes (Other)
  Sender: FDA-Public Use
  Company Number: JP-SA-SAC20210930000431

PATIENT
  Age: 9 Year
  Sex: Female

DRUGS (1)
  1. LEVOCETIRIZINE [Suspect]
     Active Substance: LEVOCETIRIZINE
     Indication: Product used for unknown indication
     Dosage: UNK
     Route: 065

REACTIONS (1)
  - Electrocardiogram QT prolonged [Unknown]
